FAERS Safety Report 6936491-1 (Version None)
Quarter: 2010Q3

REPORT INFORMATION
  Report Type: 
  Country: None (occurrence: None)
  Receive Date: 20100823
  Receipt Date: 20100813
  Transmission Date: 20110219
  Serious: Yes (Death, Other)
  Sender: FDA-Public Use
  Company Number: US-ROCHE-709884

PATIENT
  Sex: Male
  Weight: 68 kg

DRUGS (2)
  1. CAPECITABINE [Suspect]
     Indication: COLORECTAL CANCER
     Route: 048
     Dates: start: 20091012, end: 20100504
  2. COUMADIN [Concomitant]
     Indication: AORTIC VALVE REPLACEMENT

REACTIONS (3)
  - MALIGNANT NEOPLASM PROGRESSION [None]
  - PULMONARY EMBOLISM [None]
  - RENAL FAILURE ACUTE [None]
